FAERS Safety Report 24943614 (Version 1)
Quarter: 2025Q1

REPORT INFORMATION
  Report Type: Spontaneous
  Country: FR (occurrence: FR)
  Receive Date: 20250207
  Receipt Date: 20250207
  Transmission Date: 20250408
  Serious: Yes (Other)
  Sender: KNIGHT THERAPEUTICS
  Company Number: FR-Knight Therapeutics (USA) Inc.-2170744

PATIENT
  Age: 23 Year
  Sex: Male

DRUGS (1)
  1. IMPAVIDO [Suspect]
     Active Substance: MILTEFOSINE
     Indication: Cutaneous leishmaniasis
     Dates: start: 20241029, end: 20241126

REACTIONS (1)
  - Punctate keratitis [Recovering/Resolving]

NARRATIVE: CASE EVENT DATE: 20241122
